FAERS Safety Report 9300697 (Version 1)
Quarter: 2013Q2

REPORT INFORMATION
  Report Type: Spontaneous
  Country: US (occurrence: None)
  Receive Date: 20130520
  Receipt Date: 20130520
  Transmission Date: 20140414
  Serious: No
  Sender: FDA-Public Use
  Company Number: None

PATIENT
  Age: 63 Year
  Sex: Female
  Weight: 61.24 kg

DRUGS (1)
  1. LAMISIL [Suspect]
     Indication: ONYCHOMYCOSIS
     Dosage: 250 MG 1 DAILY ORAL
     Route: 048
     Dates: start: 20130403, end: 20130404

REACTIONS (4)
  - Rash generalised [None]
  - Pruritus [None]
  - Photosensitivity reaction [None]
  - Scab [None]
